FAERS Safety Report 25441616 (Version 2)
Quarter: 2025Q3

REPORT INFORMATION
  Report Type: Report from Study
  Country: EU (occurrence: EU)
  Receive Date: 20250616
  Receipt Date: 20250711
  Transmission Date: 20251021
  Serious: Yes (Other)
  Sender: MYLAN
  Company Number: EU-MYLANLABS-2025M1049895

PATIENT
  Sex: Female

DRUGS (4)
  1. GLATIRAMER ACETATE [Suspect]
     Active Substance: GLATIRAMER ACETATE
     Indication: Multiple sclerosis pseudo relapse
     Dosage: 1 DOSAGE FORM, QD (1.00 X PER DAY)
     Dates: end: 202505
  2. GLATIRAMER ACETATE [Suspect]
     Active Substance: GLATIRAMER ACETATE
     Dosage: 1 DOSAGE FORM, QD (1.00 X PER DAY)
     Route: 058
     Dates: end: 202505
  3. GLATIRAMER ACETATE [Suspect]
     Active Substance: GLATIRAMER ACETATE
     Dosage: 1 DOSAGE FORM, QD (1.00 X PER DAY)
     Route: 058
     Dates: end: 202505
  4. GLATIRAMER ACETATE [Suspect]
     Active Substance: GLATIRAMER ACETATE
     Dosage: 1 DOSAGE FORM, QD (1.00 X PER DAY)
     Dates: end: 202505

REACTIONS (3)
  - Multiple sclerosis relapse [Recovering/Resolving]
  - Vision blurred [Recovering/Resolving]
  - Treatment noncompliance [Unknown]
